FAERS Safety Report 7803509-3 (Version None)
Quarter: 2011Q4

REPORT INFORMATION
  Report Type: 
  Country: None (occurrence: None)
  Receive Date: 20111007
  Receipt Date: 20110928
  Transmission Date: 20120403
  Serious: Yes (Hospitalization)
  Sender: FDA-Public Use
  Company Number: US-ASTRAZENECA-2011SE30333

PATIENT
  Age: 63 Year
  Sex: Female
  Weight: 101.2 kg

DRUGS (73)
  1. CRESTOR [Suspect]
     Route: 048
  2. CRESTOR [Suspect]
     Route: 048
     Dates: start: 20110513, end: 20110628
  3. SYMBICORT [Suspect]
     Dosage: 160/4.5 UG INHALE 2 PUFFS TWICE A DAY
     Route: 055
     Dates: start: 20110523
  4. METOPROLOL TARTRATE [Suspect]
     Route: 048
     Dates: start: 20110131
  5. PLAVIX [Concomitant]
     Route: 048
     Dates: start: 20110602
  6. GABAPENTIN [Concomitant]
     Route: 048
     Dates: start: 20110507
  7. XANAX [Concomitant]
  8. METFORMIN HYDROCHLORIDE [Concomitant]
  9. FUROSEMIDE [Concomitant]
     Route: 048
     Dates: start: 20110124, end: 20110909
  10. METHYLPREDNISOLONE [Concomitant]
     Dosage: USE AS DIRECTED
     Dates: start: 20110616
  11. PROMETHAZINE DM SYP [Concomitant]
     Indication: PULMONARY CONGESTION
     Dosage: TAKE 1 TEASPOONFUL EVERY 4 HOURS
     Dates: start: 20110616
  12. DICYCLOMINE [Concomitant]
     Route: 048
     Dates: start: 20110802
  13. ZOLOFT [Concomitant]
  14. GEMFIBROZIL [Concomitant]
     Route: 048
     Dates: start: 20110428, end: 20110802
  15. METFORMIN HCL [Concomitant]
     Route: 048
     Dates: start: 20110131
  16. WARFARIN SODIUM [Concomitant]
     Route: 048
     Dates: start: 20110209, end: 20110323
  17. CRESTOR [Suspect]
     Route: 048
     Dates: start: 20110118, end: 20110628
  18. CRESTOR [Suspect]
     Route: 048
     Dates: start: 20110628
  19. PLAVIX [Concomitant]
     Route: 048
     Dates: start: 20110125
  20. COUMADIN [Concomitant]
  21. MUPIROCIN [Concomitant]
     Dosage: APPLY SPARINGLY 3 TIMES DAILY
     Dates: start: 20110112
  22. VENTOLIN HFA [Concomitant]
     Dosage: INHALE 2 PUFFS BY MOUTH AS NEEDED UP TO 4 TIMES DAILY
     Route: 055
     Dates: start: 20110218
  23. LOSARTAN POTASSIUM [Concomitant]
     Route: 048
     Dates: start: 20110222, end: 20110323
  24. LOSARTAN POTASSIUM [Concomitant]
     Route: 048
     Dates: start: 20110909
  25. ZOLPIDEM TARTRATE [Concomitant]
     Dosage: TAKE ONE TO TWO TABLETS AT BEDTIME AS NEEDED
     Dates: start: 20110324
  26. PLAVIX [Concomitant]
     Route: 048
     Dates: start: 20110303
  27. PLAVIX [Concomitant]
     Route: 048
     Dates: start: 20110825
  28. GABAPENTIN [Concomitant]
     Route: 048
     Dates: start: 20110812
  29. FOLIC ACID [Concomitant]
     Route: 048
     Dates: start: 20110401, end: 20110627
  30. ALPRAZOLAM [Concomitant]
     Dosage: TAKE 1 TABLET BY MOUTH EVERY 6 HOURS AS NEEDED
     Route: 048
     Dates: start: 20110124
  31. FUROSEMIDE [Concomitant]
     Route: 048
     Dates: start: 20110909
  32. LOSARTAN POTASSIUM [Concomitant]
     Route: 048
     Dates: start: 20110323
  33. RANITIDINE [Concomitant]
     Route: 048
     Dates: start: 20110324, end: 20110422
  34. METOPROLOL TARTRATE [Suspect]
     Route: 048
     Dates: start: 20110509
  35. METOPROLOL TARTRATE [Suspect]
     Route: 048
     Dates: start: 20110811
  36. LISINOPRIL [Suspect]
     Dates: start: 20110110
  37. PLAVIX [Concomitant]
     Route: 048
     Dates: start: 20110401
  38. DIABETIC MED [Concomitant]
  39. BUSPIRONE [Concomitant]
     Route: 048
     Dates: start: 20110131
  40. GABAPENTIN [Concomitant]
     Route: 048
     Dates: start: 20110216
  41. FOLIC ACID [Concomitant]
     Route: 048
     Dates: start: 20110627, end: 20110627
  42. CHERATUSSIN AC SYRUP [Concomitant]
     Dosage: 100-10 MG/5, TAKE 2 TEASPOONSFUL BY MOUTH EVERY 4 HOURS AS NEEDED - TAKE WITH 8OZ OF WAT
     Route: 048
     Dates: start: 20110112
  43. METFORMIN HCL [Concomitant]
     Route: 048
     Dates: start: 20110429
  44. WARFARIN SODIUM [Concomitant]
     Dosage: TAKE 0.5 TABLET ONCE DAILY OR AS DIRECTED
     Route: 048
     Dates: start: 20110708, end: 20110909
  45. SERTRALINE HYDROCHLORIDE [Concomitant]
     Route: 048
     Dates: start: 20110513
  46. SERTRALINE HYDROCHLORIDE [Concomitant]
     Route: 048
     Dates: start: 20110812
  47. RANITIDINE [Concomitant]
     Route: 048
     Dates: start: 20110422
  48. PROMETHAZINE DM SYP [Concomitant]
     Indication: COUGH
     Dosage: TAKE 1 TEASPOONFUL EVERY 4 HOURS
     Dates: start: 20110616
  49. PLAVIX [Concomitant]
     Route: 048
     Dates: start: 20110627
  50. ACTOS [Concomitant]
  51. COLACE [Concomitant]
  52. ASA/BUFFERS [Concomitant]
  53. GLIPIZIDE [Concomitant]
     Route: 048
     Dates: start: 20110711
  54. WARFARIN SODIUM [Concomitant]
     Dosage: TAKE 0.5 TABLET ONCE DAILY OR AS DIRECTED
     Route: 048
     Dates: start: 20110208, end: 20110909
  55. NITROFURANTOIN MONO [Concomitant]
     Dates: start: 20110517
  56. BUSPIRONE [Concomitant]
     Route: 048
     Dates: start: 20110429
  57. ALPRAZOLAM [Concomitant]
     Dosage: TAKE 1 TABLET BY MOUTH EVERY 6 HOURS AS NEEDED
     Route: 048
     Dates: start: 20110315
  58. GEMFIBROZIL [Concomitant]
     Route: 048
     Dates: start: 20110802
  59. AMOXICILLIN [Concomitant]
     Route: 048
     Dates: start: 20110124
  60. METFORMIN HCL [Concomitant]
     Route: 048
     Dates: start: 20110802
  61. WARFARIN SODIUM [Concomitant]
     Dosage: TAKE 0.5 TABLET ONCE DAILY OR AS DIRECTED
     Route: 048
     Dates: start: 20110909, end: 20110909
  62. SERTRALINE HYDROCHLORIDE [Concomitant]
     Route: 048
     Dates: start: 20110216
  63. PLAVIX [Concomitant]
     Route: 048
     Dates: start: 20110429
  64. LOPID [Concomitant]
  65. GEMFIBROZIL [Concomitant]
     Route: 048
     Dates: start: 20110124, end: 20110802
  66. FUROSEMIDE [Concomitant]
     Route: 048
     Dates: start: 20110909
  67. GLIPIZIDE [Concomitant]
     Route: 048
     Dates: start: 20110124
  68. SM SALINE NASAL SPR [Concomitant]
     Route: 045
     Dates: start: 20110124
  69. WARFARIN SODIUM [Concomitant]
     Dosage: TAKE 4.5 MG BY MOUTH DAILY AS DIRECTED
     Route: 048
     Dates: start: 20110323
  70. WARFARIN SODIUM [Concomitant]
     Dosage: TAKE 4.5 MG BY MOUTH DAILY AS DIRECTED
     Route: 048
     Dates: start: 20110708
  71. LOSARTAN POTASSIUM [Concomitant]
     Route: 048
     Dates: start: 20110616
  72. RANITIDINE [Concomitant]
     Route: 048
     Dates: start: 20110719
  73. AZITHROMYCIN [Concomitant]
     Dosage: TAKE 2 TABLETS NOW, THEN TAKE 1 TABLET EACH DAY FOR 4 DAYS
     Dates: start: 20110616

REACTIONS (1)
  - MYOCARDIAL INFARCTION [None]
